FAERS Safety Report 19624310 (Version 1)
Quarter: 2021Q3

REPORT INFORMATION
  Report Type: Spontaneous
  Country: US (occurrence: US)
  Receive Date: 20210728
  Receipt Date: 20210728
  Transmission Date: 20211014
  Serious: No
  Sender: FDA-Public Use
  Company Number: US-TEVA-2020-US-1845069

PATIENT

DRUGS (1)
  1. AUSTEDO [Suspect]
     Active Substance: DEUTETRABENAZINE
     Indication: TOURETTE^S DISORDER
     Dosage: 12 MILLIGRAM DAILY; TAKING FOR AROUND 7 MONTHS
     Route: 065
     Dates: start: 2020, end: 2020

REACTIONS (5)
  - Weight increased [Unknown]
  - Drug ineffective [Unknown]
  - Product use in unapproved indication [Unknown]
  - Abnormal dreams [Unknown]
  - Obsessive-compulsive disorder [Unknown]

NARRATIVE: CASE EVENT DATE: 2020
